FAERS Safety Report 10048662 (Version 1)
Quarter: 2014Q1

REPORT INFORMATION
  Report Type: Spontaneous
  Country: US (occurrence: US)
  Receive Date: 20140331
  Receipt Date: 20140331
  Transmission Date: 20141002
  Serious: No
  Sender: FDA-Public Use
  Company Number: US-009507513-1403USA011792

PATIENT
  Sex: Male

DRUGS (3)
  1. NASONEX [Suspect]
     Indication: NASAL POLYPS
     Dosage: 1 DF, QD (1 SPRAY IN EACH NOSTRIL ONCE DAILY)
     Route: 045
  2. ATORVASTATIN [Concomitant]
  3. SOLARAZE [Concomitant]

REACTIONS (4)
  - Epistaxis [Recovering/Resolving]
  - Sneezing [Recovering/Resolving]
  - Product quality issue [Unknown]
  - Drug dose omission [Unknown]
